FAERS Safety Report 24726681 (Version 1)
Quarter: 2024Q4

REPORT INFORMATION
  Report Type: Spontaneous
  Country: CN (occurrence: CN)
  Receive Date: 20241212
  Receipt Date: 20241212
  Transmission Date: 20250115
  Serious: Yes (Other)
  Sender: AMGEN
  Company Number: CN-AMGEN-CHNSP2024242405

PATIENT

DRUGS (4)
  1. REPATHA [Suspect]
     Active Substance: EVOLOCUMAB
     Indication: Acute coronary syndrome
     Dosage: 140 MILLIGRAM, Q2WK
     Route: 058
  2. ROSUVASTATIN CALCIUM [Suspect]
     Active Substance: ROSUVASTATIN CALCIUM
     Indication: Acute coronary syndrome
     Dosage: 10 MILLIGRAM, QD (IN THE EVENING)
     Route: 048
  3. UROKINASE [Concomitant]
     Active Substance: UROKINASE
     Indication: Thrombosis prophylaxis
     Dosage: 1000000 UNIT PER SESSION, QD (COMPLETED WITHIN 30 MINUTES, ONCE EVERY 24 HOURS)
     Route: 040
  4. HEPARIN SODIUM [Concomitant]
     Active Substance: HEPARIN SODIUM
     Indication: Anticoagulant therapy
     Dosage: 5000 INTERNATIONAL UNIT PER INJECTION, QD (ONCE EVERY 24 HOURS)
     Route: 058

REACTIONS (1)
  - Cerebrovascular accident [Unknown]
